FAERS Safety Report 15287382 (Version 2)
Quarter: 2019Q1

REPORT INFORMATION
  Report Type: Report from Study
  Country: BE (occurrence: BE)
  Receive Date: 20180817
  Receipt Date: 20190306
  Transmission Date: 20190417
  Serious: Yes (Death, Hospitalization)
  Sender: FDA-Public Use
  Company Number: BE-TAKEDA-2018MPI003086

PATIENT
  Age: 85 Year
  Sex: Female

DRUGS (5)
  1. DECADRON [Suspect]
     Active Substance: DEXAMETHASONE
     Indication: PLASMA CELL MYELOMA
     Dosage: 20 MG, 1/WEEK
     Route: 048
     Dates: start: 20180614
  2. IXAZOMIB [Suspect]
     Active Substance: IXAZOMIB
     Dosage: 1 MG/M2, 1/WEEK
     Route: 058
     Dates: start: 20180519
  3. MEDROL [Concomitant]
     Active Substance: METHYLPREDNISOLONE
     Indication: PLASMA CELL MYELOMA
     Dosage: 64 MG, UNK
     Route: 048
     Dates: start: 20171107
  4. ALKERAN [Concomitant]
     Active Substance: MELPHALAN
     Indication: PLASMA CELL MYELOMA
     Dosage: 8 MG, UNK
     Route: 048
     Dates: start: 20171107
  5. IXAZOMIB [Suspect]
     Active Substance: IXAZOMIB
     Indication: PLASMA CELL MYELOMA
     Dosage: 1.3 MG/M2, UNK
     Route: 058
     Dates: start: 20171107

REACTIONS (3)
  - General physical health deterioration [Fatal]
  - Pneumonia [Recovered/Resolved]
  - Dyspnoea [Recovered/Resolved]

NARRATIVE: CASE EVENT DATE: 20180126
